FAERS Safety Report 7673026-2 (Version None)
Quarter: 2011Q3

REPORT INFORMATION
  Report Type: 
  Country: None (occurrence: None)
  Receive Date: 20110809
  Receipt Date: 20110805
  Transmission Date: 20111222
  Serious: Yes (Life-Threatening)
  Sender: FDA-Public Use
  Company Number: PHHY2011GB70779

PATIENT
  Age: 43 Year
  Sex: Female
  Weight: 70.9 kg

DRUGS (5)
  1. LEFLUNOMIDE [Suspect]
     Indication: PSORIATIC ARTHROPATHY
     Dosage: 10 MG, QD
     Route: 048
     Dates: start: 20031113
  2. DEVIL'S CLAW [Concomitant]
  3. CETIRIZINE HCL [Concomitant]
  4. LANSOPRAZOLE [Concomitant]
  5. ETODOLAC [Concomitant]

REACTIONS (1)
  - BREAST CANCER [None]
